FAERS Safety Report 8244350-X (Version None)
Quarter: 2012Q1

REPORT INFORMATION
  Report Type: 
  Country: None (occurrence: None)
  Receive Date: 20120329
  Receipt Date: 20120320
  Transmission Date: 20120608
  Serious: Yes (Other)
  Sender: FDA-Public Use
  Company Number: US-PFIZER INC-2012072120

PATIENT
  Sex: Female

DRUGS (21)
  1. LYRICA [Suspect]
     Dosage: 150 MG, 3X/DAY (75 MG 2 TABS TID)
     Route: 048
  2. EFFEXOR XR [Concomitant]
     Dosage: 37.5 MG, 3X/DAY
  3. LISINOPRIL [Concomitant]
     Dosage: 10/12.5 MG DAILY
  4. SIMVASTATIN [Concomitant]
     Dosage: 40MG DAILY
  5. LORATADINE [Concomitant]
     Indication: HYPERSENSITIVITY
     Dosage: 10 MG, AS NEEDED
  6. FLORASTOR [Concomitant]
  7. CALCIUM CARBONATE [Concomitant]
     Dosage: 1 DF, 2X/DAY
  8. LYRICA [Suspect]
     Indication: FIBROMYALGIA
     Dosage: 150 MG, 2X/DAY
     Route: 048
  9. VITAMIN B-12 [Concomitant]
     Dosage: 200 MG, 2X/DAY
  10. FISH OIL [Concomitant]
     Dosage: 1000MG DAILY
  11. ZOLPIDEM [Concomitant]
     Dosage: 12.5 MG Q HS
  12. DEXILANT [Concomitant]
     Dosage: 60MG DAILY
  13. LEVOXYL [Concomitant]
     Dosage: 112MCG DAILY
  14. COUMADIN [Concomitant]
     Dosage: 10MG DAILY
  15. ZOFRAN [Concomitant]
     Indication: NAUSEA
     Dosage: 4 MG, AS NEEDED
  16. BACTRUM DS [Concomitant]
     Dosage: 1 DF, 2X/DAY
  17. BLACK COHOSH [Concomitant]
     Dosage: 540MG DAILY
  18. MAGNESIUM [Concomitant]
     Dosage: 250 MG, 2X/DAY
  19. XANAX [Concomitant]
     Dosage: 0.25 MG, AS NEEDED
  20. PRANDIN [Concomitant]
     Dosage: 0.5 MG, 3X/DAY
  21. ASACOL HD [Concomitant]
     Dosage: 800MG 1-2 TABS DAILY

REACTIONS (2)
  - DRUG INEFFECTIVE [None]
  - LIVER INJURY [None]
